FAERS Safety Report 6096770-X (Version None)
Quarter: 2009Q1

REPORT INFORMATION
  Report Type: 
  Country: None (occurrence: None)
  Receive Date: 20090227
  Receipt Date: 20090217
  Transmission Date: 20090719
  Serious: Yes (Other)
  Sender: FDA-Public Use
  Company Number: US-BIOGENIDEC-2009BI005636

PATIENT
  Age: 42 Year
  Sex: Female

DRUGS (3)
  1. AVONEX [Suspect]
     Indication: MULTIPLE SCLEROSIS
     Route: 030
     Dates: start: 19980801, end: 20050401
  2. AVONEX [Suspect]
     Route: 030
     Dates: start: 20061023, end: 20070506
  3. VITAMIN D [Concomitant]
     Indication: PROPHYLAXIS

REACTIONS (1)
  - THYROID CANCER [None]
